FAERS Safety Report 13996170 (Version 1)
Quarter: 2017Q3

REPORT INFORMATION
  Report Type: Spontaneous
  Country: JP (occurrence: JP)
  Receive Date: 20170921
  Receipt Date: 20170921
  Transmission Date: 20171128
  Serious: Yes (Other)
  Sender: FDA-Public Use
  Company Number: JP-BAYER-2017-160408

PATIENT
  Sex: Male

DRUGS (7)
  1. URSO [Concomitant]
     Active Substance: URSODIOL
  2. LOXONIN [Concomitant]
     Active Substance: LOXOPROFEN SODIUM
  3. HEPSERA [Concomitant]
     Active Substance: ADEFOVIR DIPIVOXIL
  4. NEXAVAR [Suspect]
     Active Substance: SORAFENIB
     Indication: HEPATOCELLULAR CARCINOMA
     Dosage: 200 MG, BID
     Route: 048
     Dates: start: 20160704, end: 20170817
  5. REBAMIPIDE [Concomitant]
     Active Substance: REBAMIPIDE
  6. BARACLUDE [Concomitant]
     Active Substance: ENTECAVIR
  7. NEXAVAR [Suspect]
     Active Substance: SORAFENIB
     Indication: HEPATOCELLULAR CARCINOMA
     Dosage: UNK
     Dates: end: 20170810

REACTIONS (2)
  - Hepatocellular carcinoma [Not Recovered/Not Resolved]
  - Palmar-plantar erythrodysaesthesia syndrome [Recovering/Resolving]

NARRATIVE: CASE EVENT DATE: 20170810
